FAERS Safety Report 7095563-4 (Version None)
Quarter: 2010Q4

REPORT INFORMATION
  Report Type: 
  Country: None (occurrence: None)
  Receive Date: 20101111
  Receipt Date: 20101028
  Transmission Date: 20110411
  Serious: Yes (Other)
  Sender: FDA-Public Use
  Company Number: US-JNJFOC-20101102335

PATIENT
  Age: 40 Year
  Sex: Female

DRUGS (11)
  1. TOPIRAMATE [Suspect]
     Indication: POST-TRAUMATIC STRESS DISORDER
     Route: 065
  2. TOPIRAMATE [Suspect]
     Route: 065
  3. TOPIRAMATE [Suspect]
     Dosage: 25 MG HOUR OF SLEEP FOR ONE WEEK
     Route: 065
  4. TOPIRAMATE [Suspect]
     Route: 065
  5. TOPIRAMATE [Suspect]
     Route: 065
  6. TOPIRAMATE [Suspect]
     Indication: SLEEP-RELATED EATING DISORDER
     Dosage: 25 MG HOUR OF SLEEP FOR ONE WEEK
     Route: 065
  7. TOPIRAMATE [Suspect]
     Route: 065
  8. TOPIRAMATE [Suspect]
     Route: 065
  9. TOPIRAMATE [Suspect]
     Route: 065
  10. TOPIRAMATE [Suspect]
     Route: 065
  11. METFORMIN HCL [Interacting]
     Indication: ILL-DEFINED DISORDER
     Route: 065

REACTIONS (3)
  - APHASIA [None]
  - DRUG INTERACTION [None]
  - ILLUSION [None]
